FAERS Safety Report 22658580 (Version 4)
Quarter: 2024Q1

REPORT INFORMATION
  Report Type: Report from Study
  Country: AR (occurrence: AR)
  Receive Date: 20230630
  Receipt Date: 20240208
  Transmission Date: 20240410
  Serious: Yes (Hospitalization, Other)
  Sender: FDA-Public Use
  Company Number: AR-002147023-NVSC2023AR147734

PATIENT
  Sex: Male

DRUGS (1)
  1. COSENTYX [Suspect]
     Active Substance: SECUKINUMAB
     Indication: Psoriatic arthropathy
     Dosage: 300 MG, QMO
     Route: 058
     Dates: start: 20230531

REACTIONS (9)
  - Arthritis [Unknown]
  - Arthralgia [Unknown]
  - Osteonecrosis [Unknown]
  - Unevaluable event [Unknown]
  - Gait inability [Unknown]
  - Bone pain [Unknown]
  - Osteoarthritis [Not Recovered/Not Resolved]
  - Psoriasis [Unknown]
  - Skin lesion [Unknown]
